FAERS Safety Report 6793284-6 (Version None)
Quarter: 2010Q2

REPORT INFORMATION
  Report Type: 
  Country: None (occurrence: None)
  Receive Date: 20100624
  Receipt Date: 20091016
  Transmission Date: 20101027
  Serious: Yes (Death)
  Sender: FDA-Public Use
  Company Number: US-MYLANLABS-2009S1018262

PATIENT
  Age: 51 Year
  Sex: Male

DRUGS (8)
  1. CLOZAPINE [Suspect]
     Indication: PSYCHOTIC DISORDER
     Route: 048
     Dates: start: 20090919, end: 20091010
  2. OMEPRAZOLE [Concomitant]
  3. SENOKOT [Concomitant]
  4. PRAVASTATIN [Concomitant]
  5. COLACE [Concomitant]
  6. ATENOLOL [Concomitant]
  7. AMLODIPINE [Concomitant]
  8. CLONIDINE [Concomitant]

REACTIONS (1)
  - DEATH [None]
